FAERS Safety Report 9449883 (Version 3)
Quarter: 2014Q1

REPORT INFORMATION
  Report Type: Spontaneous
  Country: US (occurrence: US)
  Receive Date: 20130809
  Receipt Date: 20140220
  Transmission Date: 20141002
  Serious: No
  Sender: FDA-Public Use
  Company Number: US-009507513-1308USA001523

PATIENT
  Age: 58 Year
  Sex: Female

DRUGS (2)
  1. ASMANEX TWISTHALER [Suspect]
     Dosage: UNK, 220 MICROGRAM 1 STANDARD DOSE OF 120, 2 PUFFS TWICE A DAY
     Route: 055
  2. ASMANEX TWISTHALER [Suspect]
     Dosage: UNK

REACTIONS (4)
  - Product quality issue [Unknown]
  - Drug dose omission [Unknown]
  - No adverse event [Unknown]
  - Drug dose omission [Unknown]
